FAERS Safety Report 13084478 (Version 1)
Quarter: 2017Q1

REPORT INFORMATION
  Report Type: Spontaneous
  Country: US (occurrence: US)
  Receive Date: 20170104
  Receipt Date: 20170104
  Transmission Date: 20170428
  Serious: Yes (Hospitalization)
  Sender: FDA-Public Use
  Company Number: None

PATIENT
  Age: 57 Year
  Sex: Male

DRUGS (1)
  1. STIVARGA [Suspect]
     Active Substance: REGORAFENIB
     Indication: HEPATIC CANCER
     Dosage: 4TABS DAILY X3WKS PO
     Route: 048
     Dates: start: 20161025

REACTIONS (2)
  - Drug dose omission [None]
  - Product availability issue [None]

NARRATIVE: CASE EVENT DATE: 20170102
